FAERS Safety Report 24879718 (Version 3)
Quarter: 2025Q3

REPORT INFORMATION
  Report Type: Report from Study
  Country: JP (occurrence: JP)
  Receive Date: 20250123
  Receipt Date: 20250802
  Transmission Date: 20251021
  Serious: Yes (Hospitalization, Other)
  Sender: ALEXION PHARMACEUTICALS
  Company Number: JP-ASTRAZENECA-250005184_032420_P_1

PATIENT
  Age: 72 Year
  Sex: Male
  Weight: 61 kg

DRUGS (10)
  1. TEZEPELUMAB [Suspect]
     Active Substance: TEZEPELUMAB
     Indication: Asthma
  2. BUDESONIDE [Concomitant]
     Active Substance: BUDESONIDE
     Dates: start: 20240213, end: 20240409
  3. FLUTIFORM [Concomitant]
     Active Substance: FLUTIFORM
     Indication: Asthma
     Dates: start: 20240410, end: 20240702
  4. FLUTIFORM [Concomitant]
     Active Substance: FLUTIFORM
     Dates: start: 20240703, end: 20240730
  5. FLUTIFORM [Concomitant]
     Active Substance: FLUTIFORM
     Dates: start: 20240731
  6. PRANLUKAST [Concomitant]
     Active Substance: PRANLUKAST
     Indication: Asthma
  7. PRANLUKAST [Concomitant]
     Active Substance: PRANLUKAST
     Dosage: 225 MILLIGRAM
  8. ATORVASTATIN [Concomitant]
     Active Substance: ATORVASTATIN
     Indication: Hyperlipidaemia
     Dates: start: 20241218
  9. METFORMIN HYDROCHLORIDE [Concomitant]
     Active Substance: METFORMIN HYDROCHLORIDE
     Indication: Diabetes mellitus
  10. METFORMIN HYDROCHLORIDE [Concomitant]
     Active Substance: METFORMIN HYDROCHLORIDE

REACTIONS (4)
  - Lacunar infarction [Recovered/Resolved]
  - Palpitations [Recovered/Resolved]
  - Dyspnoea [Recovered/Resolved]
  - Psychogenic seizure [Unknown]

NARRATIVE: CASE EVENT DATE: 20241216
